FAERS Safety Report 9610604 (Version 1)
Quarter: 2013Q4

REPORT INFORMATION
  Report Type: Spontaneous
  Country: MX (occurrence: MX)
  Receive Date: 20131009
  Receipt Date: 20131009
  Transmission Date: 20140711
  Serious: Yes (Other)
  Sender: FDA-Public Use
  Company Number: PHHY2013MX113157

PATIENT
  Sex: Male

DRUGS (3)
  1. TEGRETOL [Suspect]
     Indication: TRIGEMINAL NEURALGIA
     Dosage: 3 DF, UNK
     Route: 048
     Dates: start: 200501
  2. OMEPRAZOL ^ACYFABRIK^ [Concomitant]
     Dosage: UNK UKN, UNK
  3. SENOKOT                                 /USA/ [Concomitant]
     Dosage: UNK UKN, UNK

REACTIONS (3)
  - Abdominal hernia [Recovered/Resolved]
  - Fall [Recovered/Resolved]
  - Forearm fracture [Not Recovered/Not Resolved]
